FAERS Safety Report 7710968-3 (Version None)
Quarter: 2011Q3

REPORT INFORMATION
  Report Type: 
  Country: None (occurrence: None)
  Receive Date: 20110825
  Receipt Date: 20110816
  Transmission Date: 20111222
  Serious: Yes (Death, Life-Threatening, Other)
  Sender: FDA-Public Use
  Company Number: US-RB-026987-11

PATIENT
  Sex: Female

DRUGS (4)
  1. PROZAC [Suspect]
     Indication: BIPOLAR DISORDER
     Route: 048
  2. KLONOPIN [Suspect]
     Indication: INSOMNIA
     Dosage: 1 MILLIGRAM AT BEDTIME.
     Route: 048
  3. SUBOXONE [Suspect]
     Indication: DRUG DEPENDENCE
     Route: 060
     Dates: start: 20110429, end: 20110502
  4. SUBOXONE [Suspect]
     Indication: DRUG DEPENDENCE
     Dosage: DOSING SCHEDULE UNKNOWN.
     Route: 065
     Dates: end: 20110427

REACTIONS (2)
  - OVERDOSE [None]
  - SUBSTANCE ABUSE [None]
